FAERS Safety Report 4322683-7 (Version None)
Quarter: 2004Q1

REPORT INFORMATION
  Report Type: 
  Country: None (occurrence: None)
  Receive Date: 20040319
  Receipt Date: 20031222
  Transmission Date: 20041129
  Serious: Yes (Other)
  Sender: FDA-Public Use
  Company Number: HQWYE890523DEC03

PATIENT
  Age: 68 Year
  Sex: Male
  Weight: 79.45 kg

DRUGS (4)
  1. RAPAMUNE [Suspect]
     Indication: HEART TRANSPLANT
     Dosage: 1 MG 1X PER 1 DAY, ORAL; 1 MG 1X PER 2 DAY
     Route: 048
     Dates: start: 20020101, end: 20030801
  2. RAPAMUNE [Suspect]
     Indication: HEART TRANSPLANT
     Dosage: 1 MG 1X PER 1 DAY, ORAL; 1 MG 1X PER 2 DAY
     Route: 048
     Dates: start: 20030801
  3. PREDNISONE [Concomitant]
  4. NEORAL [Concomitant]

REACTIONS (1)
  - SQUAMOUS CELL CARCINOMA [None]
